FAERS Safety Report 16883517 (Version 1)
Quarter: 2019Q4

REPORT INFORMATION
  Report Type: Spontaneous
  Country: CA (occurrence: CA)
  Receive Date: 20191004
  Receipt Date: 20191004
  Transmission Date: 20200122
  Serious: Yes (Other)
  Sender: FDA-Public Use
  Company Number: CA-TEVA-2019-CA-1115946

PATIENT
  Sex: Male

DRUGS (2)
  1. HALOPERIDOL. [Suspect]
     Active Substance: HALOPERIDOL
     Indication: BIPOLAR DISORDER
  2. HALOPERIDOL. [Suspect]
     Active Substance: HALOPERIDOL
     Indication: ANAEMIA
     Route: 065

REACTIONS (8)
  - Restlessness [Not Recovered/Not Resolved]
  - Photosensitivity reaction [Not Recovered/Not Resolved]
  - Dyskinesia [Not Recovered/Not Resolved]
  - Dysstasia [Not Recovered/Not Resolved]
  - Feeling cold [Not Recovered/Not Resolved]
  - Hypothermia [Not Recovered/Not Resolved]
  - Salivary hypersecretion [Not Recovered/Not Resolved]
  - Dysphagia [Not Recovered/Not Resolved]
